FAERS Safety Report 24949755 (Version 1)
Quarter: 2025Q1

REPORT INFORMATION
  Report Type: Spontaneous
  Country: FR (occurrence: FR)
  Receive Date: 20250210
  Receipt Date: 20250210
  Transmission Date: 20250409
  Serious: Yes (Other)
  Sender: ELI LILLY AND COMPANY
  Company Number: None

PATIENT
  Age: 41 Year
  Sex: Female

DRUGS (2)
  1. OLUMIANT [Suspect]
     Active Substance: BARICITINIB
     Indication: Behcet^s syndrome
     Dosage: 1 DOSAGE FORM, DAILY
     Route: 048
     Dates: start: 202407
  2. XELJANZ [Suspect]
     Active Substance: TOFACITINIB CITRATE
     Indication: Behcet^s syndrome
     Dosage: 1 DOSAGE FORM, DAILY
     Route: 048
     Dates: start: 202208, end: 202407

REACTIONS (3)
  - Myalgia [Not Recovered/Not Resolved]
  - Myalgia [Not Recovered/Not Resolved]
  - Off label use [Unknown]

NARRATIVE: CASE EVENT DATE: 20240801
